FAERS Safety Report 7626568-X (Version None)
Quarter: 2011Q3

REPORT INFORMATION
  Report Type: 
  Country: None (occurrence: None)
  Receive Date: 20110721
  Receipt Date: 20110713
  Transmission Date: 20111222
  Serious: Yes (Hospitalization)
  Sender: FDA-Public Use
  Company Number: JP-GLAXOSMITHKLINE-B0715569A

PATIENT
  Sex: Female
  Weight: 43 kg

DRUGS (21)
  1. ALKERAN [Suspect]
     Indication: STEM CELL TRANSPLANT
     Dosage: 98MG PER DAY
     Route: 042
     Dates: start: 20070421, end: 20070422
  2. METHOTREXATE [Concomitant]
     Indication: IMMUNOSUPPRESSION
     Dosage: 10MGM2 PER DAY
     Route: 065
     Dates: start: 20070422, end: 20070422
  3. KYTRIL [Concomitant]
     Dosage: 3MG PER DAY
     Dates: start: 20070416, end: 20070423
  4. SANDIMMUNE [Concomitant]
     Dosage: 140MG PER DAY
     Route: 065
     Dates: start: 20070502, end: 20070603
  5. GRAN [Concomitant]
     Dates: start: 20070611, end: 20070611
  6. ALDACTONE [Concomitant]
     Dosage: 25MG PER DAY
     Route: 048
     Dates: start: 20070331, end: 20070427
  7. LANSOPRAZOLE [Concomitant]
     Dosage: 15MG PER DAY
     Route: 048
     Dates: start: 20070409, end: 20070614
  8. ATARAX [Concomitant]
     Dosage: 25MG PER DAY
     Dates: start: 20070422, end: 20070501
  9. NEUTROGIN [Concomitant]
     Dates: start: 20070429, end: 20070505
  10. CIPROFLOXACIN HCL [Concomitant]
     Dosage: 600MG PER DAY
     Route: 048
     Dates: start: 20070405, end: 20070511
  11. SANDIMMUNE [Concomitant]
     Dosage: 220MG PER DAY
     Route: 065
     Dates: start: 20070428, end: 20070429
  12. FLUDARA [Suspect]
     Indication: STEM CELL TRANSPLANT
     Dosage: 42MG PER DAY
     Route: 042
     Dates: start: 20070416, end: 20070420
  13. URSO 250 [Concomitant]
     Dosage: 600MG PER DAY
     Route: 048
     Dates: start: 20070330, end: 20070614
  14. FUROSEMIDE [Concomitant]
     Dosage: 10MG PER DAY
     Route: 048
     Dates: start: 20070331, end: 20070614
  15. FUNGUARD [Concomitant]
     Dosage: 50MG PER DAY
     Route: 042
     Dates: start: 20070410, end: 20070513
  16. ZOVIRAX [Concomitant]
     Dosage: 1000MG PER DAY
     Route: 048
     Dates: start: 20070416, end: 20070527
  17. SANDIMMUNE [Concomitant]
     Dosage: 340MG PER DAY
     Route: 065
     Dates: start: 20070430, end: 20070501
  18. METHOTREXATE [Concomitant]
     Dosage: 7MGM2 PER DAY
     Route: 065
     Dates: start: 20070424, end: 20070424
  19. PRIMPERAN TAB [Concomitant]
     Dosage: 2IUAX PER DAY
     Dates: start: 20070422, end: 20070506
  20. SANDIMMUNE [Concomitant]
     Indication: IMMUNOSUPPRESSION
     Dosage: 138MG PER DAY
     Route: 065
     Dates: start: 20070423, end: 20070427
  21. SANDIMMUNE [Concomitant]
     Dosage: 250MG PER DAY
     Route: 065
     Dates: start: 20070604, end: 20070619

REACTIONS (3)
  - RENAL IMPAIRMENT [None]
  - PSEUDOMEMBRANOUS COLITIS [None]
  - FEBRILE NEUTROPENIA [None]
